FAERS Safety Report 4697992-2 (Version None)
Quarter: 2005Q2

REPORT INFORMATION
  Report Type: 
  Country: None (occurrence: None)
  Receive Date: 20050621
  Receipt Date: 20050613
  Transmission Date: 20051028
  Serious: Yes (Death, Hospitalization, Other)
  Sender: FDA-Public Use
  Company Number: 2004088700

PATIENT
  Age: 71 Year
  Sex: Male
  Weight: 76 kg

DRUGS (5)
  1. LIPITOR [Suspect]
     Indication: HEART DISEASE CONGENITAL
     Dosage: 20  MG (20 MG, 1 IN 1 D), ORAL
     Route: 048
     Dates: start: 20040504, end: 20040616
  2. SOTALOL HCL [Concomitant]
  3. ASPIRIN [Concomitant]
  4. LEVOTHYROXINE SODIUM [Concomitant]
  5. ARTHROTEC [Concomitant]

REACTIONS (9)
  - ASTHENIA [None]
  - FATIGUE [None]
  - HEPATIC FAILURE [None]
  - JAUNDICE [None]
  - MALAISE [None]
  - NAUSEA [None]
  - RENAL FAILURE [None]
  - RHABDOMYOLYSIS [None]
  - VOMITING [None]
